FAERS Safety Report 12346987 (Version 1)
Quarter: 2016Q2

REPORT INFORMATION
  Report Type: Spontaneous
  Country: US (occurrence: US)
  Receive Date: 20160509
  Receipt Date: 20160509
  Transmission Date: 20160815
  Serious: No
  Sender: FDA-Public Use
  Company Number: US-ASTRAZENECA-2016SE34133

PATIENT
  Age: 18600 Day
  Sex: Female
  Weight: 135.6 kg

DRUGS (8)
  1. CLARITIN [Concomitant]
     Active Substance: LORATADINE
     Indication: MULTIPLE ALLERGIES
     Route: 048
  2. PROGESTERONE. [Concomitant]
     Active Substance: PROGESTERONE
     Indication: BLOOD PROLACTIN ABNORMAL
     Dosage: NIGHTLY
     Route: 048
     Dates: start: 2015
  3. MOBIC [Concomitant]
     Active Substance: MELOXICAM
     Indication: ARTHRITIS
     Route: 048
  4. LYRICA [Concomitant]
     Active Substance: PREGABALIN
     Indication: BACK DISORDER
     Route: 048
  5. SINGULAIR [Concomitant]
     Active Substance: MONTELUKAST SODIUM
     Indication: MULTIPLE ALLERGIES
     Dosage: NIGHTLY
     Route: 048
  6. ZYRTEC [Concomitant]
     Active Substance: CETIRIZINE HYDROCHLORIDE
     Indication: MULTIPLE ALLERGIES
     Route: 048
  7. SYMBICORT [Suspect]
     Active Substance: BUDESONIDE\FORMOTEROL FUMARATE DIHYDRATE
     Indication: ALLERGIC BRONCHITIS
     Dosage: 80/4.5 MCG, TWO PUFFS TWO TIMES A DAY
     Route: 055
     Dates: start: 201511, end: 20160324
  8. ALLEGRA [Concomitant]
     Active Substance: FEXOFENADINE HYDROCHLORIDE
     Indication: MULTIPLE ALLERGIES
     Route: 048

REACTIONS (3)
  - Drug dose omission [Not Recovered/Not Resolved]
  - Device defective [Unknown]
  - Chest discomfort [Not Recovered/Not Resolved]

NARRATIVE: CASE EVENT DATE: 20160325
